FAERS Safety Report 6134125-X (Version None)
Quarter: 2009Q1

REPORT INFORMATION
  Report Type: 
  Country: None (occurrence: None)
  Receive Date: 20090326
  Receipt Date: 20090316
  Transmission Date: 20090719
  Serious: Yes (Death, Life-Threatening, Hospitalization, Disabling, Other)
  Sender: FDA-Public Use
  Company Number: DE-AMGEN-UK308614

PATIENT
  Sex: Male

DRUGS (7)
  1. PANITUMUMAB [Suspect]
     Indication: COLORECTAL CANCER
     Route: 042
     Dates: start: 20080326, end: 20080910
  2. LEUCOVORIN CALCIUM [Concomitant]
     Route: 065
  3. FLUOROURACIL [Concomitant]
     Route: 065
  4. IRINOTECAN HCL [Concomitant]
     Route: 065
  5. TAVOR [Concomitant]
  6. LOPERAMIDE HCL [Concomitant]
  7. TINCTURE OF OPIUM [Concomitant]

REACTIONS (5)
  - CIRCULATORY COLLAPSE [None]
  - DEHYDRATION [None]
  - DIARRHOEA [None]
  - PULMONARY EMBOLISM [None]
  - SEPTIC SHOCK [None]
